FAERS Safety Report 7898637-0 (Version None)
Quarter: 2011Q4

REPORT INFORMATION
  Report Type: 
  Country: None (occurrence: None)
  Receive Date: 20111107
  Receipt Date: 20111107
  Transmission Date: 20120403
  Serious: Yes (Other)
  Sender: FDA-Public Use
  Company Number: None

PATIENT
  Age: 38 Year
  Sex: Male
  Weight: 88.45 kg

DRUGS (1)
  1. ZOCOR [Suspect]
     Indication: BLOOD CHOLESTEROL ABNORMAL
     Dates: start: 20110301, end: 20111101

REACTIONS (5)
  - ARTHRALGIA [None]
  - MYALGIA [None]
  - INSOMNIA [None]
  - MUSCLE ATROPHY [None]
  - PAIN [None]
